FAERS Safety Report 4536529-5 (Version None)
Quarter: 2004Q4

REPORT INFORMATION
  Report Type: 
  Country: None (occurrence: None)
  Receive Date: 20041220
  Receipt Date: 20041208
  Transmission Date: 20050328
  Serious: Yes (Other)
  Sender: FDA-Public Use
  Company Number: 200415966BCC

PATIENT
  Age: 79 Year
  Sex: Male

DRUGS (1)
  1. ALEVE [Suspect]
     Dosage: 440 MG, BID, ORAL
     Route: 048

REACTIONS (1)
  - BLOOD PRESSURE INCREASED [None]
